FAERS Safety Report 10841677 (Version 1)
Quarter: 2015Q1

REPORT INFORMATION
  Report Type: Report from Study
  Country: IT (occurrence: IT)
  Receive Date: 20150220
  Receipt Date: 20150220
  Transmission Date: 20150721
  Serious: Yes (Other)
  Sender: FDA-Public Use
  Company Number: IT-ROCHE-1539953

PATIENT
  Sex: Male

DRUGS (1)
  1. ZELBORAF [Suspect]
     Active Substance: VEMURAFENIB
     Indication: MALIGNANT MELANOMA STAGE III
     Route: 065

REACTIONS (8)
  - Dyspnoea [Unknown]
  - Skin exfoliation [Unknown]
  - Asthenia [Unknown]
  - Skin cancer [Unknown]
  - Hypertransaminasaemia [Unknown]
  - Renal impairment [Unknown]
  - Decreased appetite [Unknown]
  - Vomiting [Unknown]
